FAERS Safety Report 7068787-X (Version None)
Quarter: 2010Q4

REPORT INFORMATION
  Report Type: 
  Country: None (occurrence: None)
  Receive Date: 20101028
  Receipt Date: 20101025
  Transmission Date: 20110411
  Serious: Yes (Hospitalization)
  Sender: FDA-Public Use
  Company Number: AU-PFIZER INC-2005061739

PATIENT
  Age: 60 Year
  Sex: Male

DRUGS (8)
  1. SUNITINIB MALATE [Suspect]
     Indication: THYROID CANCER
     Dosage: INTERVAL: EVERY 28 DAYS
     Route: 048
     Dates: start: 20050308
  2. LEVOTHYROXINE SODIUM [Concomitant]
     Route: 048
     Dates: start: 19970101
  3. TENORMIN [Concomitant]
     Route: 048
     Dates: start: 19970101
  4. BETACAROTENE [Concomitant]
     Route: 048
     Dates: start: 19990101
  5. BEROCCA C [Concomitant]
     Route: 048
     Dates: start: 20021205
  6. AVAPRO [Concomitant]
     Route: 048
     Dates: start: 20021202
  7. KEPPRA [Concomitant]
     Route: 048
     Dates: start: 20041119
  8. FLUCLOXACILLIN [Concomitant]
     Route: 048
     Dates: start: 20050404

REACTIONS (1)
  - BURSITIS [None]
